FAERS Safety Report 6597220-7 (Version None)
Quarter: 2010Q1

REPORT INFORMATION
  Report Type: 
  Country: None (occurrence: None)
  Receive Date: 20100223
  Receipt Date: 20100218
  Transmission Date: 20100710
  Serious: Yes (Hospitalization)
  Sender: FDA-Public Use
  Company Number: BE-ABBOTT-10P-013-0627554-00

PATIENT
  Sex: Female

DRUGS (18)
  1. HUMIRA [Suspect]
     Indication: RHEUMATOID ARTHRITIS
     Dates: start: 20060405
  2. NOVOMIX 30 [Concomitant]
     Indication: DRUG USE FOR UNKNOWN INDICATION
     Dosage: 20U IN THE MORING AND 12U IN THE EVENING
  3. BELSAR [Concomitant]
     Indication: DRUG USE FOR UNKNOWN INDICATION
  4. ZANIDIP [Concomitant]
     Indication: DRUG USE FOR UNKNOWN INDICATION
  5. ZANIDIP [Concomitant]
  6. NOBITEN [Concomitant]
     Indication: DRUG USE FOR UNKNOWN INDICATION
  7. NOBITEN [Concomitant]
  8. BUMEX [Concomitant]
     Indication: DRUG USE FOR UNKNOWN INDICATION
  9. MOXONIDINE [Concomitant]
     Indication: DRUG USE FOR UNKNOWN INDICATION
  10. NITRODERM [Concomitant]
     Indication: DRUG USE FOR UNKNOWN INDICATION
     Route: 062
  11. ASAFLOW [Concomitant]
     Indication: DRUG USE FOR UNKNOWN INDICATION
  12. LIPITOR [Concomitant]
     Indication: DRUG USE FOR UNKNOWN INDICATION
  13. CLOZAN [Concomitant]
     Indication: DRUG USE FOR UNKNOWN INDICATION
  14. CALCIUM CARBONATE [Concomitant]
     Indication: DRUG USE FOR UNKNOWN INDICATION
  15. D-CURE [Concomitant]
     Indication: DRUG USE FOR UNKNOWN INDICATION
  16. D-CURE [Concomitant]
  17. LYSOMUCIL [Concomitant]
     Indication: DRUG USE FOR UNKNOWN INDICATION
  18. MOVICOL [Concomitant]
     Indication: DRUG USE FOR UNKNOWN INDICATION

REACTIONS (3)
  - ASTHENIA [None]
  - CONSTIPATION [None]
  - HYPERTENSION [None]
